FAERS Safety Report 7541588-1 (Version None)
Quarter: 2011Q2

REPORT INFORMATION
  Report Type: 
  Country: None (occurrence: None)
  Receive Date: 20110613
  Receipt Date: 20110610
  Transmission Date: 20111010
  Serious: No
  Sender: FDA-Public Use
  Company Number: US-PFIZER INC-2011117901

PATIENT

DRUGS (1)
  1. XANAX [Suspect]
     Dosage: 1 MG, UNK

REACTIONS (3)
  - DYSPEPSIA [None]
  - ORAL DISCOMFORT [None]
  - GLOSSODYNIA [None]
